FAERS Safety Report 9695861 (Version 1)
Quarter: 2013Q4

REPORT INFORMATION
  Report Type: Spontaneous
  Country: US (occurrence: None)
  Receive Date: 20131118
  Receipt Date: 20131118
  Transmission Date: 20140711
  Serious: Yes (Other)
  Sender: FDA-Public Use
  Company Number: None

PATIENT
  Age: 58 Year
  Sex: Female
  Weight: 71.67 kg

DRUGS (3)
  1. PICATO [Suspect]
     Indication: ACTINIC KERATOSIS
     Dosage: 1 TUBE PER DAY/DAY/3 DAYS  ONCE DAILY APPLIED TO A SURFACE, USUALLY THE SKIN
     Route: 061
     Dates: start: 20130515, end: 20130515
  2. VITAMIN D3 [Concomitant]
  3. BIOTIN [Concomitant]

REACTIONS (2)
  - Wound secretion [None]
  - Unevaluable event [None]
